FAERS Safety Report 4520867-6 (Version None)
Quarter: 2004Q4

REPORT INFORMATION
  Report Type: 
  Country: None (occurrence: None)
  Receive Date: 20041206
  Receipt Date: 20041206
  Transmission Date: 20050328
  Serious: Yes (Other)
  Sender: FDA-Public Use
  Company Number: None

PATIENT
  Age: 48 Year
  Sex: Female
  Weight: 104.3273 kg

DRUGS (1)
  1. FOSINOPRIL [Suspect]
     Indication: HYPERTENSION
     Dosage: 40 MGM ONE PO QD
     Route: 048
     Dates: start: 20040525, end: 20041129

REACTIONS (1)
  - MIGRAINE [None]
